FAERS Safety Report 15342300 (Version 1)
Quarter: 2018Q3

REPORT INFORMATION
  Report Type: Spontaneous
  Country: FR (occurrence: FR)
  Receive Date: 20180902
  Receipt Date: 20180902
  Transmission Date: 20181010
  Serious: Yes (Hospitalization)
  Sender: FDA-Public Use
  Company Number: FR-ROCHE-2178477

PATIENT
  Age: 55 Year
  Sex: Female

DRUGS (4)
  1. VOGALENE [Suspect]
     Active Substance: METOPIMAZINE
     Indication: INTENTIONAL OVERDOSE
     Route: 048
     Dates: start: 20180608, end: 20180608
  2. VALIUM [Suspect]
     Active Substance: DIAZEPAM
     Indication: INTENTIONAL OVERDOSE
     Route: 048
     Dates: start: 20180608, end: 20180608
  3. ALCOHOL. [Suspect]
     Active Substance: ALCOHOL
     Indication: INTENTIONAL OVERDOSE
     Route: 048
     Dates: start: 20180608, end: 20180608
  4. ZOLPIDEM [Suspect]
     Active Substance: ZOLPIDEM\ZOLPIDEM TARTRATE
     Indication: INTENTIONAL OVERDOSE
     Route: 048
     Dates: start: 20180608, end: 20180608

REACTIONS (4)
  - Hypotension [Recovered/Resolved]
  - Coma [Recovered/Resolved]
  - Poisoning deliberate [Recovered/Resolved]
  - Tachycardia [Recovered/Resolved]

NARRATIVE: CASE EVENT DATE: 20180608
